FAERS Safety Report 20104261 (Version 1)
Quarter: 2021Q4

REPORT INFORMATION
  Report Type: Spontaneous
  Country: US (occurrence: US)
  Receive Date: 20211123
  Receipt Date: 20211123
  Transmission Date: 20220303
  Serious: Yes (Hospitalization, Other)
  Sender: FDA-Public Use
  Company Number: US-LUNDBECK-DKLU3041314

PATIENT
  Age: 54 Year
  Sex: Male

DRUGS (1)
  1. SABRIL [Suspect]
     Active Substance: VIGABATRIN
     Indication: Huntington^s disease
     Route: 048
     Dates: start: 20210223

REACTIONS (3)
  - Seizure [Unknown]
  - Confusional state [Unknown]
  - Accidental overdose [Unknown]

NARRATIVE: CASE EVENT DATE: 20211117
